FAERS Safety Report 16727055 (Version 3)
Quarter: 2019Q4

REPORT INFORMATION
  Report Type: Report from Study
  Country: CO (occurrence: CO)
  Receive Date: 20190821
  Receipt Date: 20191018
  Transmission Date: 20200122
  Serious: Yes (Other)
  Sender: FDA-Public Use
  Company Number: PHHY2019CO194198

PATIENT
  Sex: Male
  Weight: 85 kg

DRUGS (1)
  1. GILENYA [Suspect]
     Active Substance: FINGOLIMOD HYDROCHLORIDE
     Indication: MULTIPLE SCLEROSIS
     Dosage: 0.5 MG, QD
     Route: 048
     Dates: start: 20120624, end: 201809

REACTIONS (7)
  - Blindness [Recovering/Resolving]
  - Retinal detachment [Recovering/Resolving]
  - Vision blurred [Recovering/Resolving]
  - Intraocular pressure increased [Recovering/Resolving]
  - Macular detachment [Not Recovered/Not Resolved]
  - Cataract [Recovering/Resolving]
  - Retinal disorder [Recovering/Resolving]

NARRATIVE: CASE EVENT DATE: 2016
